FAERS Safety Report 21582734 (Version 2)
Quarter: 2022Q4

REPORT INFORMATION
  Report Type: Other
  Country: KR (occurrence: KR)
  Receive Date: 20221111
  Receipt Date: 20221122
  Transmission Date: 20230113
  Serious: Yes (Other)
  Sender: FDA-Public Use
  Company Number: KR-002147023-NVSC2022KR253128

PATIENT
  Age: 50 Year
  Sex: Male

DRUGS (1)
  1. XOLAIR [Suspect]
     Active Substance: OMALIZUMAB
     Indication: Chronic spontaneous urticaria
     Dosage: 150 MG (4 TIMES, AT EVERY 4 WEEKS)
     Route: 058
     Dates: start: 20220625, end: 202209

REACTIONS (3)
  - Hyperthyroidism [Unknown]
  - Thyroid disorder [Unknown]
  - Concomitant disease aggravated [Unknown]

NARRATIVE: CASE EVENT DATE: 20221001
